FAERS Safety Report 25402465 (Version 3)
Quarter: 2025Q2

REPORT INFORMATION
  Report Type: Report from Study
  Country: JP (occurrence: JP)
  Receive Date: 20250605
  Receipt Date: 20250620
  Transmission Date: 20250717
  Serious: Yes (Hospitalization, Disabling, Other)
  Sender: PFIZER
  Company Number: JP-ASTELLAS-2022JP005376

PATIENT
  Age: 66 Year
  Sex: Male
  Weight: 71 kg

DRUGS (13)
  1. PADCEV [Suspect]
     Active Substance: ENFORTUMAB VEDOTIN-EJFV
     Indication: Bladder cancer
     Dosage: 90 MG/DAY (1.25MG/KG)
     Route: 041
     Dates: start: 20220308, end: 20220308
  2. PADCEV [Suspect]
     Active Substance: ENFORTUMAB VEDOTIN-EJFV
     Route: 041
     Dates: start: 20220322, end: 20220419
  3. PADCEV [Suspect]
     Active Substance: ENFORTUMAB VEDOTIN-EJFV
     Route: 041
     Dates: start: 20220510, end: 20220816
  4. PADCEV [Suspect]
     Active Substance: ENFORTUMAB VEDOTIN-EJFV
     Route: 041
     Dates: start: 20220906, end: 20220920
  5. PADCEV [Suspect]
     Active Substance: ENFORTUMAB VEDOTIN-EJFV
     Route: 041
     Dates: start: 20221011, end: 20221220
  6. PADCEV [Suspect]
     Active Substance: ENFORTUMAB VEDOTIN-EJFV
     Route: 041
     Dates: start: 20230117
  7. CISPLATIN [Suspect]
     Active Substance: CISPLATIN
     Indication: Transitional cell carcinoma
     Route: 065
     Dates: start: 20191203, end: 202001
  8. CISPLATIN [Suspect]
     Active Substance: CISPLATIN
     Route: 065
     Dates: start: 20210816, end: 202109
  9. GEMCITABINE HYDROCHLORIDE [Suspect]
     Active Substance: GEMCITABINE HYDROCHLORIDE
     Indication: Transitional cell carcinoma
     Route: 065
     Dates: start: 20191203, end: 202001
  10. PETROLATUM [Concomitant]
     Active Substance: PETROLATUM
     Indication: Rash erythematous
     Dosage: ADEQUATE DOSE
     Route: 065
     Dates: start: 20220312, end: 20220317
  11. DIFLUCORTOLONE VALERATE [Concomitant]
     Active Substance: DIFLUCORTOLONE VALERATE
     Indication: Rash erythematous
     Dosage: ADEQUATE DOSE
     Route: 065
     Dates: start: 20220312, end: 20220317
  12. FEXOFENADINE [Concomitant]
     Active Substance: FEXOFENADINE HYDROCHLORIDE
     Indication: Rash erythematous
     Dosage: 60 MG, 2X/DAY
     Route: 048
     Dates: start: 20220312, end: 20220317
  13. WHITE PETROLATUM [Concomitant]
     Active Substance: PETROLATUM
     Dosage: EXTERNAL USE [APPLICATION], ADEQUATE DOSE, ONCE DAILY
     Dates: end: 20220317

REACTIONS (3)
  - Rash erythematous [Recovered/Resolved]
  - Neuropathy peripheral [Not Recovered/Not Resolved]
  - Palmar-plantar erythrodysaesthesia syndrome [Recovered/Resolved]

NARRATIVE: CASE EVENT DATE: 20220312
